FAERS Safety Report 7795229-9 (Version None)
Quarter: 2011Q4

REPORT INFORMATION
  Report Type: 
  Country: None (occurrence: None)
  Receive Date: 20111004
  Receipt Date: 20110926
  Transmission Date: 20120403
  Serious: Yes (Other)
  Sender: FDA-Public Use
  Company Number: US-AMGEN-USASP2011049786

PATIENT
  Age: 66 Year
  Sex: Female

DRUGS (2)
  1. ENBREL [Suspect]
     Indication: RHEUMATOID ARTHRITIS
     Dosage: 50 MG, QWK
     Dates: start: 20000115
  2. TREXALL [Concomitant]
     Dosage: 3 MG, QWK
     Dates: start: 20110922

REACTIONS (13)
  - BUNION [None]
  - DIARRHOEA [None]
  - FINGER DEFORMITY [None]
  - OSTEOPOROSIS [None]
  - PAIN IN EXTREMITY [None]
  - INSOMNIA [None]
  - TENDON OPERATION [None]
  - STRESS [None]
  - NODULE [None]
  - RHEUMATOID ARTHRITIS [None]
  - JOINT DESTRUCTION [None]
  - SPINAL OSTEOARTHRITIS [None]
  - CARPAL TUNNEL SYNDROME [None]
